FAERS Safety Report 11865558 (Version 1)
Quarter: 2015Q4

REPORT INFORMATION
  Report Type: Report from Study
  Country: MX (occurrence: MX)
  Receive Date: 20151223
  Receipt Date: 20151223
  Transmission Date: 20160305
  Serious: Yes (Other)
  Sender: FDA-Public Use
  Company Number: PHHY2015MX152745

PATIENT
  Age: 63 Year
  Sex: Female
  Weight: 100 kg

DRUGS (5)
  1. ULTIBRO BREEZHALER [Suspect]
     Active Substance: GLYCOPYRRONIUM\INDACATEROL
     Indication: PRODUCT USED FOR UNKNOWN INDICATION
     Dosage: 110/50
     Route: 065
  2. MIFLONIDE [Suspect]
     Active Substance: BUDESONIDE
     Indication: PRODUCT USED FOR UNKNOWN INDICATION
     Dosage: 400 MG, UNK
     Route: 065
  3. GALVUS MET [Suspect]
     Active Substance: METFORMIN HYDROCHLORIDE\VILDAGLIPTIN
     Indication: DIABETES MELLITUS
     Dosage: 1 DF (1000/50 MG), AFTER EVERY MEAL
     Route: 048
  4. IMPLICANE [Concomitant]
     Indication: DEPRESSION
     Dosage: 50 MG, QD (DAILY AFTER BREAKFAST)
     Route: 048
  5. TEGRETOL [Suspect]
     Active Substance: CARBAMAZEPINE
     Indication: EMOTIONAL DISORDER
     Dosage: 3 DF, TID (1 AT BREAKFAST, 1 AT 2PM AND 1 AT 7PM)
     Route: 065
     Dates: start: 2000

REACTIONS (14)
  - Cholelithiasis [Recovered/Resolved]
  - Gastrointestinal inflammation [Recovered/Resolved]
  - Product use issue [Unknown]
  - Flatulence [Recovered/Resolved]
  - Abdominal pain upper [Recovered/Resolved]
  - Wound complication [Recovered/Resolved]
  - Body temperature increased [Recovered/Resolved]
  - Bronchial disorder [Recovering/Resolving]
  - Nausea [Recovered/Resolved]
  - Cholecystitis [Recovered/Resolved]
  - Pain [Recovered/Resolved]
  - Bladder mass [Recovered/Resolved]
  - Frequent bowel movements [Recovered/Resolved]
  - Headache [Recovered/Resolved]

NARRATIVE: CASE EVENT DATE: 20151210
